FAERS Safety Report 8306838-2 (Version None)
Quarter: 2012Q2

REPORT INFORMATION
  Report Type: 
  Country: None (occurrence: None)
  Receive Date: 20120424
  Receipt Date: 20120418
  Transmission Date: 20120825
  Serious: No
  Sender: FDA-Public Use
  Company Number: US-PFIZER INC-2012097509

PATIENT
  Sex: Female

DRUGS (4)
  1. PROTONIX [Suspect]
     Dosage: UNK
  2. LIPITOR [Suspect]
     Dosage: UNK
  3. NORVASC [Suspect]
     Dosage: UNK
  4. GLUCOTROL XL [Suspect]
     Dosage: UNK

REACTIONS (2)
  - VERTIGO [None]
  - HEADACHE [None]
